FAERS Safety Report 19660844 (Version 1)
Quarter: 2021Q3

REPORT INFORMATION
  Report Type: Spontaneous
  Country: US (occurrence: US)
  Receive Date: 20210805
  Receipt Date: 20210805
  Transmission Date: 20211014
  Serious: No
  Sender: FDA-Public Use
  Company Number: None

PATIENT

DRUGS (2)
  1. PROAMATINE [Suspect]
     Active Substance: MIDODRINE HYDROCHLORIDE
  2. PROTAMINE [Suspect]
     Active Substance: PROTAMINE

REACTIONS (2)
  - Product prescribing error [None]
  - Intercepted product administration error [None]
